FAERS Safety Report 6808517-7 (Version None)
Quarter: 2010Q2

REPORT INFORMATION
  Report Type: 
  Country: None (occurrence: None)
  Receive Date: 20100629
  Receipt Date: 20090629
  Transmission Date: 20101027
  Serious: No
  Sender: FDA-Public Use
  Company Number: US-PFIZER INC-2009234160

PATIENT
  Age: 47 Year
  Sex: Female
  Weight: 55.782 kg

DRUGS (2)
  1. XANAX [Suspect]
     Indication: INSOMNIA
     Dosage: 0.5 MG, AS NEEDED
     Route: 048
     Dates: start: 20090509
  2. PLAN B [Suspect]
     Indication: CONTRACEPTION
     Dosage: 0.75 MG, 2X/DAY
     Route: 048
     Dates: start: 20090508, end: 20090509

REACTIONS (2)
  - DIZZINESS [None]
  - NAUSEA [None]
